FAERS Safety Report 25776302 (Version 1)
Quarter: 2025Q3

REPORT INFORMATION
  Report Type: Spontaneous
  Country: US (occurrence: US)
  Receive Date: 20250909
  Receipt Date: 20250909
  Transmission Date: 20251020
  Serious: No
  Sender: DOMPE FARMACEUTICI
  Company Number: US-FARMAPROD-202408-2981

PATIENT
  Age: 82 Year
  Sex: Female

DRUGS (19)
  1. OXERVATE [Suspect]
     Active Substance: CENEGERMIN-BKBJ
     Indication: Neurotrophic keratopathy
     Route: 047
     Dates: start: 20240813
  2. LORADAMED [Concomitant]
  3. XYLITOL [Concomitant]
     Active Substance: XYLITOL
  4. WOMEN^S 50 PLUS MULTIVITAMIN [Concomitant]
  5. LYRICA [Concomitant]
     Active Substance: PREGABALIN
  6. PRED FORTE [Concomitant]
     Active Substance: PREDNISOLONE ACETATE
  7. VEVYE [Concomitant]
     Active Substance: CYCLOSPORINE
  8. COCONUT OIL [Concomitant]
     Active Substance: COCONUT OIL
  9. KETOCONAZOLE [Concomitant]
     Active Substance: KETOCONAZOLE
  10. AMOXICILLIN [Concomitant]
     Active Substance: AMOXICILLIN
  11. DIAZEPAM [Concomitant]
     Active Substance: DIAZEPAM
  12. TRAMADOL HCL [Concomitant]
     Active Substance: TRAMADOL HYDROCHLORIDE
  13. ZOLPIDEM TARTRATE [Concomitant]
     Active Substance: ZOLPIDEM TARTRATE
  14. POTASSIUM CHLORIDE [Concomitant]
     Active Substance: POTASSIUM CHLORIDE
  15. IRBESARTAN [Concomitant]
     Active Substance: IRBESARTAN
  16. HYDROCHLOROTHIAZIDE [Concomitant]
     Active Substance: HYDROCHLOROTHIAZIDE
  17. METOPROLOL TARTRATE [Concomitant]
     Active Substance: METOPROLOL TARTRATE
  18. ATORVASTATIN CALCIUM [Concomitant]
     Active Substance: ATORVASTATIN CALCIUM
  19. ASPIRIN [Concomitant]
     Active Substance: ASPIRIN

REACTIONS (2)
  - Product dose omission issue [Unknown]
  - Device use issue [Unknown]

NARRATIVE: CASE EVENT DATE: 20240815
